FAERS Safety Report 4272843-9 (Version None)
Quarter: 2004Q1

REPORT INFORMATION
  Report Type: 
  Country: None (occurrence: None)
  Receive Date: 20040114
  Receipt Date: 20040105
  Transmission Date: 20041129
  Serious: Yes (Hospitalization, Other)
  Sender: FDA-Public Use
  Company Number: 2003119747

PATIENT
  Age: 15 Year
  Sex: Female
  Weight: 58.9676 kg

DRUGS (4)
  1. NEURONTIN [Suspect]
     Indication: DEPRESSION
     Dosage: 300 MG (DAILY), ORAL
     Route: 048
     Dates: start: 20030101
  2. ACETAMINOPHEN [Suspect]
     Indication: ILL-DEFINED DISORDER
     Dosage: ORAL
     Route: 048
  3. ACETYLCYSTEINE [Suspect]
     Indication: INTENTIONAL OVERDOSE
     Dates: start: 20030601
  4. CELEXA [Concomitant]

REACTIONS (3)
  - INTENTIONAL OVERDOSE [None]
  - SUICIDE ATTEMPT [None]
  - VOMITING [None]
